FAERS Safety Report 13474236 (Version 4)
Quarter: 2017Q3

REPORT INFORMATION
  Report Type: Spontaneous
  Country: CN (occurrence: CN)
  Receive Date: 20170424
  Receipt Date: 20170801
  Transmission Date: 20171127
  Serious: Yes (Hospitalization, Other)
  Sender: FDA-Public Use
  Company Number: CN-ELI_LILLY_AND_COMPANY-CN201704008597

PATIENT
  Age: 28 Year
  Sex: Female
  Weight: 54 kg

DRUGS (7)
  1. TADALAFIL [Suspect]
     Active Substance: TADALAFIL
     Indication: PULMONARY ARTERIAL HYPERTENSION
     Dosage: 40 MG, UNKNOWN
     Route: 065
     Dates: start: 20140314
  2. WARFARIN [Concomitant]
     Active Substance: WARFARIN
     Indication: PULMONARY ARTERIAL HYPERTENSION
     Dosage: 2.5 MG, UNKNOWN
     Route: 065
     Dates: start: 20140306
  3. DIGOXIN. [Concomitant]
     Active Substance: DIGOXIN
     Indication: PULMONARY ARTERIAL HYPERTENSION
     Dosage: 0.125 MG, UNKNOWN
     Route: 065
     Dates: start: 20140306
  4. SPIRONOLACTONE. [Concomitant]
     Active Substance: SPIRONOLACTONE
     Indication: PULMONARY ARTERIAL HYPERTENSION
     Dosage: 20 MG, UNKNOWN
     Route: 065
     Dates: start: 20170206
  5. TORASEMIDE [Concomitant]
     Active Substance: TORSEMIDE
     Indication: PULMONARY ARTERIAL HYPERTENSION
     Dosage: 20 MG, UNKNOWN
     Route: 065
     Dates: start: 20170206
  6. AMBRISENTAN [Suspect]
     Active Substance: AMBRISENTAN
     Indication: PULMONARY ARTERIAL HYPERTENSION
     Dosage: 5 MG, UNKNOWN
     Route: 065
     Dates: start: 20170204
  7. METHYLPREDNISOLONE. [Concomitant]
     Active Substance: METHYLPREDNISOLONE
     Indication: PULMONARY ARTERIAL HYPERTENSION
     Dosage: 15 MG, UNKNOWN
     Route: 065
     Dates: start: 20141230

REACTIONS (5)
  - Orthostatic hypotension [Recovered/Resolved]
  - Amaurosis [Recovered/Resolved]
  - Pulmonary hypertension [Unknown]
  - Cardiac failure [Unknown]
  - Ascites [Unknown]

NARRATIVE: CASE EVENT DATE: 20170413
